FAERS Safety Report 10681261 (Version 1)
Quarter: 2014Q4

REPORT INFORMATION
  Report Type: Spontaneous
  Country: FR (occurrence: FR)
  Receive Date: 20141230
  Receipt Date: 20141230
  Transmission Date: 20150529
  Serious: Yes (Hospitalization, Other)
  Sender: FDA-Public Use
  Company Number: FR-ABBVIE-14K-056-1325619-00

PATIENT
  Age: 62 Year
  Sex: Female

DRUGS (6)
  1. METFORMINE [Concomitant]
     Active Substance: METFORMIN HYDROCHLORIDE
     Indication: PRODUCT USED FOR UNKNOWN INDICATION
  2. HUMIRA [Suspect]
     Active Substance: ADALIMUMAB
     Indication: UVEITIS
     Route: 058
     Dates: start: 201407
  3. INSULIN GLARGINE [Concomitant]
     Active Substance: INSULIN GLARGINE
     Indication: PRODUCT USED FOR UNKNOWN INDICATION
  4. CORTANCYL [Concomitant]
     Active Substance: PREDNISONE
     Indication: PRODUCT USED FOR UNKNOWN INDICATION
  5. REPAGLINIDE. [Concomitant]
     Active Substance: REPAGLINIDE
     Indication: PRODUCT USED FOR UNKNOWN INDICATION
  6. SKENAN [Concomitant]
     Active Substance: MORPHINE SULFATE
     Indication: PRODUCT USED FOR UNKNOWN INDICATION

REACTIONS (14)
  - Urticaria [Recovered/Resolved]
  - Joint effusion [Unknown]
  - Rheumatoid factor positive [Unknown]
  - Immunoglobulins [Unknown]
  - Musculoskeletal stiffness [Unknown]
  - Antineutrophil cytoplasmic antibody positive [Unknown]
  - Arthralgia [Unknown]
  - Monoclonal immunoglobulin present [Unknown]
  - Arthralgia [Recovered/Resolved]
  - Rash macular [Unknown]
  - Complement factor C4 decreased [Unknown]
  - Cryoglobulinaemia [Unknown]
  - Musculoskeletal stiffness [Recovered/Resolved]
  - Urticaria [Unknown]

NARRATIVE: CASE EVENT DATE: 2014
